FAERS Safety Report 24103286 (Version 1)
Quarter: 2024Q3

REPORT INFORMATION
  Report Type: Spontaneous
  Country: GB (occurrence: GB)
  Receive Date: 20240717
  Receipt Date: 20240717
  Transmission Date: 20241017
  Serious: Yes (Disabling, Other)
  Sender: AUROBINDO
  Company Number: GB-MHRA-MED-202407072305556260-SKFLV

PATIENT
  Age: 26 Year
  Sex: Male

DRUGS (1)
  1. FINASTERIDE [Suspect]
     Active Substance: FINASTERIDE
     Indication: Alopecia
     Dosage: 1 MILLIGRAM, ONCE A DAY
     Route: 065
     Dates: start: 20221106, end: 20221205

REACTIONS (1)
  - Suicidal ideation [Recovered/Resolved with Sequelae]

NARRATIVE: CASE EVENT DATE: 20230303
